FAERS Safety Report 18368311 (Version 1)
Quarter: 2020Q4

REPORT INFORMATION
  Report Type: Spontaneous
  Country: US (occurrence: US)
  Receive Date: 20201009
  Receipt Date: 20201009
  Transmission Date: 20210114
  Serious: Yes (Disabling, Other)
  Sender: FDA-Public Use
  Company Number: US-PURDUE-USA-2020-0169347

PATIENT
  Age: 41 Year
  Sex: Male

DRUGS (5)
  1. OXYCONTIN [Suspect]
     Active Substance: OXYCODONE HYDROCHLORIDE
     Indication: BACK PAIN
     Dosage: 40 MG, UNK
     Route: 048
  2. PERCOCET [Suspect]
     Active Substance: ACETAMINOPHEN\OXYCODONE HYDROCHLORIDE
     Indication: BACK PAIN
     Dosage: 5 MG, UNK
     Route: 065
  3. HEROIN [Suspect]
     Active Substance: DIAMORPHINE
     Indication: PRODUCT USED FOR UNKNOWN INDICATION
     Dosage: UNK
     Route: 065
  4. OXYCONTIN [Suspect]
     Active Substance: OXYCODONE HYDROCHLORIDE
     Dosage: 80 MG, BID
     Route: 048
  5. OXYCONTIN [Suspect]
     Active Substance: OXYCODONE HYDROCHLORIDE
     Dosage: 80 MG, 2 IN MORNING AND ONE IN EVENING
     Route: 048

REACTIONS (12)
  - Road traffic accident [Unknown]
  - Emotional distress [Unknown]
  - Tooth loss [Unknown]
  - Drug withdrawal syndrome [Unknown]
  - General physical condition abnormal [Unknown]
  - Drug abuse [Unknown]
  - Impaired driving ability [Unknown]
  - Drug dependence [Unknown]
  - Mental fatigue [Unknown]
  - Pain [Unknown]
  - Dependence [Unknown]
  - Memory impairment [Unknown]
